FAERS Safety Report 9393254 (Version 1)
Quarter: 2013Q3

REPORT INFORMATION
  Report Type: Spontaneous
  Country: JP (occurrence: JP)
  Receive Date: 20130710
  Receipt Date: 20130710
  Transmission Date: 20140515
  Serious: Yes (Other)
  Sender: FDA-Public Use
  Company Number: JP-PFIZER INC-2013200346

PATIENT
  Sex: Female

DRUGS (2)
  1. JZOLOFT [Suspect]
     Dosage: 25 MG, 1X/DAY
     Route: 048
     Dates: end: 2013
  2. DIAZEPAM [Concomitant]

REACTIONS (3)
  - Suicide attempt [Recovering/Resolving]
  - Anxiety [Recovering/Resolving]
  - Dysphagia [Not Recovered/Not Resolved]
